FAERS Safety Report 17401811 (Version 2)
Quarter: 2020Q1

REPORT INFORMATION
  Report Type: Spontaneous
  Country: US (occurrence: US)
  Receive Date: 20200211
  Receipt Date: 20200331
  Transmission Date: 20200409
  Serious: Yes (Hospitalization, Other)
  Sender: FDA-Public Use
  Company Number: US-ASTRAZENECA-2020SE18827

PATIENT
  Sex: Male

DRUGS (1)
  1. SYMBICORT [Suspect]
     Active Substance: BUDESONIDE\FORMOTEROL FUMARATE DIHYDRATE
     Indication: ASTHMA
     Dosage: DAILY, 160/4.5 MCG ONE OR TWO PUFFS IN THE MORNING ONLY
     Route: 055

REACTIONS (8)
  - Pancreatic carcinoma [Unknown]
  - Drug delivery system issue [Unknown]
  - Gastrooesophageal reflux disease [Unknown]
  - Device issue [Unknown]
  - Product dose omission [Unknown]
  - Neoplasm [Unknown]
  - Wrong technique in product usage process [Unknown]
  - Intentional product misuse [Unknown]
